FAERS Safety Report 24430393 (Version 2)
Quarter: 2025Q2

REPORT INFORMATION
  Report Type: Spontaneous
  Country: US (occurrence: US)
  Receive Date: 20241013
  Receipt Date: 20250521
  Transmission Date: 20250717
  Serious: No
  Sender: SANOFI AVENTIS
  Company Number: US-SA-2024SA292021

PATIENT
  Age: 4 Year
  Sex: Male
  Weight: 18.144 kg

DRUGS (1)
  1. DUPIXENT [Suspect]
     Active Substance: DUPILUMAB
     Indication: Dermatitis atopic
     Dosage: 200 MG, Q4W
     Route: 058

REACTIONS (4)
  - Pruritus [Unknown]
  - Dry skin [Unknown]
  - Therapeutic response shortened [Unknown]
  - Incorrect dose administered [Unknown]
